FAERS Safety Report 19732342 (Version 1)
Quarter: 2021Q3

REPORT INFORMATION
  Report Type: Spontaneous
  Country: FR (occurrence: FR)
  Receive Date: 20210822
  Receipt Date: 20210822
  Transmission Date: 20211014
  Serious: Yes (Hospitalization)
  Sender: FDA-Public Use
  Company Number: FR-TEVA-2021-FR-1942947

PATIENT
  Age: 49 Year
  Sex: Female

DRUGS (14)
  1. PIRILENE 500 MG, COMPRIME [Suspect]
     Active Substance: PYRAZINAMIDE
     Indication: TUBERCULOSIS
     Dosage: 1.5 GRAM
     Route: 048
     Dates: start: 20210603, end: 20210728
  2. EMTRICITABINE [Suspect]
     Active Substance: EMTRICITABINE
     Dosage: 200 MG
     Route: 048
     Dates: start: 20210603
  3. RIFADINE [Suspect]
     Active Substance: RIFAMPIN
     Indication: TUBERCULOSIS
     Dosage: 800 MG
     Route: 042
     Dates: start: 20210603, end: 20210728
  4. FUMARATE DE TENOFOVIR DISOPROXIL [Suspect]
     Active Substance: TENOFOVIR DISOPROXIL FUMARATE
     Dosage: 245 MG
     Route: 048
     Dates: start: 20210603
  5. ISONIAZIDE [Suspect]
     Active Substance: ISONIAZID
     Indication: TUBERCULOSIS
     Dosage: 300 MG
     Route: 042
     Dates: start: 20210603, end: 20210728
  6. ISENTRESS [Suspect]
     Active Substance: RALTEGRAVIR POTASSIUM
     Indication: HIV INFECTION
     Dosage: 800 MG
     Route: 048
     Dates: start: 20210603
  7. MYAMBUTOL [Suspect]
     Active Substance: ETHAMBUTOL HYDROCHLORIDE
     Indication: TUBERCULOSIS
     Dosage: 1.6 GRAM
     Route: 042
     Dates: start: 20210603, end: 20210728
  8. KEPPRA [Concomitant]
     Active Substance: LEVETIRACETAM
     Dosage: UNKNOWN,THERAPY START DATE :ASKU
     Route: 048
  9. LOVENOX [Concomitant]
     Active Substance: ENOXAPARIN SODIUM
     Dosage: UNKNOWN,THERAPY START DATE :ASKU
     Route: 058
  10. MIRTAZAPINE. [Concomitant]
     Active Substance: MIRTAZAPINE
     Dosage: UNKNOWN,THERAPY START DATE :ASKU
     Route: 048
  11. MACROGOL (STEARATE DE) [Concomitant]
     Active Substance: POLYETHYLENE GLYCOLS
     Dosage: UNKNOWN,THERAPY START DATE :ASKU
     Route: 048
  12. PARACETAMOL [Concomitant]
     Active Substance: ACETAMINOPHEN
     Dosage: UNKNOWN,THERAPY START DATE :ASKU
     Route: 048
  13. DIFFU K, GELULE [Concomitant]
     Active Substance: POTASSIUM CHLORIDE
     Dosage: THERAPY START DATE :ASKU,UNKNOWN
     Route: 048
  14. PREDNISOLONE. [Concomitant]
     Active Substance: PREDNISOLONE
     Dosage: UNKNOWN, THERAPY START DATE :ASKU
     Route: 048

REACTIONS (1)
  - Haemolytic anaemia [Not Recovered/Not Resolved]

NARRATIVE: CASE EVENT DATE: 20210618
